FAERS Safety Report 9036949 (Version 1)
Quarter: 2013Q1

REPORT INFORMATION
  Report Type: Spontaneous
  Country: GB (occurrence: None)
  Receive Date: 20130110
  Receipt Date: 20130110
  Transmission Date: 20140127
  Serious: Yes (Life-Threatening)
  Sender: FDA-Public Use
  Company Number: 2013034384

PATIENT
  Age: 32 Year
  Sex: Female

DRUGS (2)
  1. PRIVIGEN [Suspect]
     Indication: TOXIC EPIDERMAL NECROLYSIS
     Dosage: 2 G/KG INTRAVENOUS (NOT OTHERWISE SPECIFIED)
     Route: 042
  2. SULFASALAZINE (SULFASALAZINE) [Concomitant]

REACTIONS (4)
  - Epidermolysis [None]
  - Acute respiratory distress syndrome [None]
  - Drug ineffective for unapproved indication [None]
  - Disease progression [None]
